FAERS Safety Report 7011399-4 (Version None)
Quarter: 2010Q3

REPORT INFORMATION
  Report Type: 
  Country: None (occurrence: None)
  Receive Date: 20100923
  Receipt Date: 20090107
  Transmission Date: 20110219
  Serious: No
  Sender: FDA-Public Use
  Company Number: US-WYE-H07636709

PATIENT
  Sex: Male

DRUGS (1)
  1. ZOSYN [Suspect]
     Dosage: 3.375 MG
     Route: 042

REACTIONS (4)
  - HYPERSENSITIVITY [None]
  - LACRIMATION INCREASED [None]
  - PRURITUS GENERALISED [None]
  - RHINORRHOEA [None]
